FAERS Safety Report 18081637 (Version 1)
Quarter: 2020Q3

REPORT INFORMATION
  Report Type: Report from Study
  Country: CA (occurrence: CA)
  Receive Date: 20200728
  Receipt Date: 20200728
  Transmission Date: 20201103
  Serious: Yes (Other)
  Sender: FDA-Public Use
  Company Number: CA-JNJFOC-20200725773

PATIENT
  Age: 36 Year
  Sex: Female

DRUGS (2)
  1. STELARA [Suspect]
     Active Substance: USTEKINUMAB
     Indication: COLITIS ULCERATIVE
     Route: 058
     Dates: start: 20200529
  2. STELARA [Suspect]
     Active Substance: USTEKINUMAB

REACTIONS (10)
  - Tachycardia [Unknown]
  - White blood cell count increased [Unknown]
  - Vitreous floaters [Unknown]
  - Cellulitis [Recovering/Resolving]
  - Vertigo [Unknown]
  - Pulmonary embolism [Unknown]
  - Dyspnoea [Unknown]
  - Extrasystoles [Unknown]
  - Nausea [Unknown]
  - Myalgia [Unknown]

NARRATIVE: CASE EVENT DATE: 2020
